FAERS Safety Report 15918351 (Version 1)
Quarter: 2019Q1

REPORT INFORMATION
  Report Type: Spontaneous
  Country: IT (occurrence: IT)
  Receive Date: 20190205
  Receipt Date: 20190205
  Transmission Date: 20190417
  Serious: Yes (Death, Other)
  Sender: FDA-Public Use
  Company Number: IT-ASTRAZENECA-2019SE18595

PATIENT
  Age: 54 Year
  Sex: Male

DRUGS (6)
  1. GEMCITABINE [Concomitant]
     Active Substance: GEMCITABINE\GEMCITABINE HYDROCHLORIDE
     Indication: SQUAMOUS CELL CARCINOMA
  2. DOCETAXEL. [Concomitant]
     Active Substance: DOCETAXEL
     Indication: SQUAMOUS CELL CARCINOMA
  3. NIVOLUMAB [Concomitant]
     Active Substance: NIVOLUMAB
     Indication: SQUAMOUS CELL CARCINOMA
  4. ERLOTINIB [Concomitant]
     Active Substance: ERLOTINIB
     Indication: SQUAMOUS CELL CARCINOMA
  5. OSIMERTINIB. [Suspect]
     Active Substance: OSIMERTINIB
     Indication: SQUAMOUS CELL CARCINOMA
     Route: 048
  6. CISPLATIN. [Concomitant]
     Active Substance: CISPLATIN
     Indication: SQUAMOUS CELL CARCINOMA

REACTIONS (5)
  - Metastases to central nervous system [Unknown]
  - EGFR gene mutation [Unknown]
  - Drug resistance [Unknown]
  - Metastases to skin [Unknown]
  - Malignant neoplasm progression [Unknown]
